FAERS Safety Report 6181885-8 (Version None)
Quarter: 2009Q2

REPORT INFORMATION
  Report Type: 
  Country: None (occurrence: None)
  Receive Date: 20090416
  Receipt Date: 20090407
  Transmission Date: 20091009
  Serious: Yes (Hospitalization)
  Sender: FDA-Public Use
  Company Number: 2009020049

PATIENT
  Sex: Female

DRUGS (9)
  1. VIVAGLOBIN [Suspect]
     Indication: HYPERGAMMAGLOBULINAEMIA
     Dosage: 120 ML SUBCUTANEOUS
     Route: 058
     Dates: start: 20080501, end: 20080701
  2. VIVAGLOBIN [Suspect]
     Indication: MULTIPLE MYELOMA
     Dosage: 120 ML SUBCUTANEOUS
     Route: 058
     Dates: start: 20080501, end: 20080701
  3. VIVAGLOBIN [Suspect]
     Indication: MYOPATHY
     Dosage: 120 ML SUBCUTANEOUS
     Route: 058
     Dates: start: 20080501, end: 20080701
  4. TEGELINE LPB (IMMUNOGLOBULIN HUMAN NORMAL) [Suspect]
     Dosage: INTRAVENOUS (NOT OTHERWISE SPECIFIED)
     Route: 042
     Dates: start: 20071201, end: 20080401
  5. LEVOTHYROXINE SODIUM [Concomitant]
  6. CACIT-D3 (LEKOVIT CA) ( ) [Concomitant]
  7. PANTOPRAZOLE SODIUM [Concomitant]
  8. ACTONEL [Concomitant]
  9. PHENOXYMETHYLPENICILLIN [Concomitant]

REACTIONS (1)
  - PULMONARY EMBOLISM [None]
